FAERS Safety Report 7049434-X (Version None)
Quarter: 2010Q4

REPORT INFORMATION
  Report Type: 
  Country: None (occurrence: None)
  Receive Date: 20101007
  Receipt Date: 20100916
  Transmission Date: 20110411
  Serious: No
  Sender: FDA-Public Use
  Company Number: 010173

PATIENT
  Age: 69 Year
  Sex: Male
  Weight: 78.9 kg

DRUGS (5)
  1. SAMSCA [Suspect]
     Indication: HYPONATRAEMIA
     Dosage: 15 MG, DAILY, DOSE, ORAL, 30 MG, DAILY DOSE, ORAL, 60 MG, DAILY DOSE, ORAL
     Route: 048
     Dates: start: 20100302
  2. SAMSCA [Suspect]
     Indication: HYPONATRAEMIA
     Dosage: 15 MG, DAILY, DOSE, ORAL, 30 MG, DAILY DOSE, ORAL, 60 MG, DAILY DOSE, ORAL
     Route: 048
     Dates: start: 20100427
  3. SAMSCA [Suspect]
     Indication: HYPONATRAEMIA
     Dosage: 15 MG, DAILY, DOSE, ORAL, 30 MG, DAILY DOSE, ORAL, 60 MG, DAILY DOSE, ORAL
     Route: 048
     Dates: start: 20100503
  4. LASIX [Concomitant]
  5. ALDACTONE [Concomitant]

REACTIONS (2)
  - BLOOD SODIUM DECREASED [None]
  - DRUG INEFFECTIVE [None]
